FAERS Safety Report 8536966-8 (Version None)
Quarter: 2012Q3

REPORT INFORMATION
  Report Type: 
  Country: None (occurrence: None)
  Receive Date: 20120725
  Receipt Date: 20120719
  Transmission Date: 20120928
  Serious: No
  Sender: FDA-Public Use
  Company Number: US-009507513-1207USA008787

PATIENT

DRUGS (3)
  1. TELAPREVIR [Suspect]
  2. RIBASPHERE [Suspect]
  3. PEG-INTRON [Suspect]
     Indication: HEPATITIS C
     Dosage: 150 MICROGRAM, QW
     Route: 058
     Dates: start: 20120101

REACTIONS (2)
  - RECTAL HAEMORRHAGE [None]
  - ANORECTAL DISCOMFORT [None]
